FAERS Safety Report 9332820 (Version 2)
Quarter: 2013Q2

REPORT INFORMATION
  Report Type: Spontaneous
  Country: BR (occurrence: BR)
  Receive Date: 20130606
  Receipt Date: 20130618
  Transmission Date: 20140414
  Serious: Yes (Death, Hospitalization, Other)
  Sender: FDA-Public Use
  Company Number: BR-PFIZER INC-2013169923

PATIENT
  Age: 66 Year
  Sex: Female
  Weight: 77 kg

DRUGS (4)
  1. SUTENT [Suspect]
     Indication: RENAL CELL CARCINOMA
     Dosage: 50 MG, 1X/DAY, CYCLIC (4X/2)
     Route: 048
     Dates: start: 2012
  2. LOSARTAN [Concomitant]
     Indication: HYPERTENSION
     Dosage: 2 TABLETS, 1X/DAY
  3. PURAN T4 [Concomitant]
     Dosage: ONE TABLET DAILY
  4. CALCITRIOL [Concomitant]
     Indication: BONE DISORDER
     Dosage: ONE TABLET DAILY

REACTIONS (10)
  - Tumour haemorrhage [Fatal]
  - Epilepsy [Fatal]
  - Eating disorder [Unknown]
  - Asthenia [Unknown]
  - Haemorrhage urinary tract [Recovered/Resolved]
  - Disease progression [Unknown]
  - Renal cell carcinoma [Unknown]
  - Thyroid disorder [Unknown]
  - Ovarian disorder [Unknown]
  - Insomnia [Unknown]
